FAERS Safety Report 6761694-9 (Version None)
Quarter: 2010Q2

REPORT INFORMATION
  Report Type: 
  Country: None (occurrence: None)
  Receive Date: 20100510
  Receipt Date: 20100428
  Transmission Date: 20101027
  Serious: Yes (Life-Threatening)
  Sender: FDA-Public Use
  Company Number: 201O022010

PATIENT
  Age: 52 Year
  Sex: Male

DRUGS (3)
  1. VIVAGLOBIN [Suspect]
     Indication: AXONAL NEUROPATHY
     Dosage: SUBCUTANEOUS
     Route: 058
     Dates: start: 20091201
  2. VIVAGLOBIN [Suspect]
     Indication: AXONAL NEUROPATHY
     Dosage: SUBCUTANEOUS
     Route: 058
     Dates: start: 20091201
  3. GAMUNEX [Suspect]
     Indication: AXONAL NEUROPATHY
     Dosage: INTRAVENOUS
     Route: 042
     Dates: start: 20091201

REACTIONS (2)
  - CEREBROVASCULAR ACCIDENT [None]
  - PULMONARY EMBOLISM [None]
